FAERS Safety Report 13055010 (Version 3)
Quarter: 2017Q1

REPORT INFORMATION
  Report Type: Spontaneous
  Country: FR (occurrence: FR)
  Receive Date: 20161222
  Receipt Date: 20170215
  Transmission Date: 20170428
  Serious: Yes (Death)
  Sender: FDA-Public Use
  Company Number: FR-JNJFOC-20161216222

PATIENT
  Age: 62 Year
  Sex: Male
  Weight: 65 kg

DRUGS (7)
  1. MOVICOL [Concomitant]
     Active Substance: POLYETHYLENE GLYCOL 3350\POTASSIUM CHLORIDE\SODIUM BICARBONATE\SODIUM CHLORIDE
     Route: 065
  2. LOXAPAC [Suspect]
     Active Substance: LOXAPINE SUCCINATE
     Indication: PRODUCT USED FOR UNKNOWN INDICATION
     Route: 048
     Dates: start: 20160921, end: 20161018
  3. DOLIPRANE [Concomitant]
     Active Substance: ACETAMINOPHEN
     Route: 065
  4. VALIUM [Suspect]
     Active Substance: DIAZEPAM
     Indication: PRODUCT USED FOR UNKNOWN INDICATION
     Route: 048
     Dates: start: 20160921, end: 20161018
  5. RISPERDAL [Suspect]
     Active Substance: RISPERIDONE
     Indication: PRODUCT USED FOR UNKNOWN INDICATION
     Route: 048
     Dates: start: 20160926, end: 20161017
  6. PRINCI B [Concomitant]
     Active Substance: PYRIDOXINE\THIAMINE
     Route: 065
  7. OFLOXACINE [Concomitant]
     Active Substance: OFLOXACIN
     Route: 065
     Dates: start: 20161018, end: 20161018

REACTIONS (6)
  - Urinary retention [Unknown]
  - Bladder dilatation [Fatal]
  - Tremor [Fatal]
  - Pallor [Fatal]
  - Distal intestinal obstruction syndrome [Fatal]
  - Prostatitis [Unknown]

NARRATIVE: CASE EVENT DATE: 20161017
